FAERS Safety Report 15302317 (Version 2)
Quarter: 2018Q3

REPORT INFORMATION
  Report Type: Not Available
  Country: US (occurrence: US)
  Receive Date: 20180821
  Receipt Date: 20180912
  Transmission Date: 20181010
  Serious: Yes (Hospitalization)
  Sender: FDA-Public Use
  Company Number: US-NEUROCRINE BIOSCIENCES INC.-2018NBI02426

PATIENT
  Age: 58 Year
  Sex: Female

DRUGS (9)
  1. INGREZZA [Suspect]
     Active Substance: VALBENAZINE
  2. HALDOL [Suspect]
     Active Substance: HALOPERIDOL
     Indication: SCHIZOPHRENIA
     Dates: start: 2013, end: 20180801
  3. BENZTROPINE. [Concomitant]
     Active Substance: BENZTROPINE
     Indication: TARDIVE DYSKINESIA
     Dosage: AT BED TIME (HS)
     Dates: start: 20180401, end: 2018
  4. PROPRANOLOL [Concomitant]
     Active Substance: PROPRANOLOL HYDROCHLORIDE
     Indication: TREMOR
  5. INGREZZA [Suspect]
     Active Substance: VALBENAZINE
     Dates: end: 20180803
  6. HALDOL [Suspect]
     Active Substance: HALOPERIDOL
     Route: 030
     Dates: start: 20180417
  7. BENZTROPINE. [Concomitant]
     Active Substance: BENZTROPINE
     Indication: EXTRAPYRAMIDAL DISORDER
     Dates: start: 201806
  8. INGREZZA [Suspect]
     Active Substance: VALBENAZINE
     Indication: FEELING JITTERY
     Dates: start: 20171116
  9. BENZTROPINE. [Concomitant]
     Active Substance: BENZTROPINE
     Indication: MUSCULOSKELETAL STIFFNESS

REACTIONS (7)
  - Blunted affect [Unknown]
  - Blood pressure increased [Unknown]
  - Heart rate increased [Unknown]
  - Renal failure [Unknown]
  - Pyrexia [Unknown]
  - Musculoskeletal stiffness [Unknown]
  - Tremor [Unknown]

NARRATIVE: CASE EVENT DATE: 201808
